FAERS Safety Report 6313089-X (Version None)
Quarter: 2009Q3

REPORT INFORMATION
  Report Type: 
  Country: None (occurrence: None)
  Receive Date: 20090818
  Receipt Date: 20090810
  Transmission Date: 20100115
  Serious: Yes (Disabling, Other)
  Sender: FDA-Public Use
  Company Number: GB-PFIZER INC-2009200195

PATIENT
  Age: 38 Year

DRUGS (2)
  1. CHAMPIX [Suspect]
     Indication: SMOKING CESSATION THERAPY
     Dosage: 1 MG, 2X/DAY
     Route: 048
     Dates: start: 20090304, end: 20090415
  2. CERAZETTE [Concomitant]
     Indication: CONTRACEPTION
     Dosage: UNK
     Route: 048

REACTIONS (22)
  - ABNORMAL DREAMS [None]
  - ANXIETY [None]
  - BLISTER [None]
  - DEPRESSED MOOD [None]
  - DEREALISATION [None]
  - FATIGUE [None]
  - FLATULENCE [None]
  - HALLUCINATION [None]
  - HEADACHE [None]
  - INCREASED APPETITE [None]
  - INSOMNIA [None]
  - MENORRHAGIA [None]
  - MENTAL IMPAIRMENT [None]
  - MOOD SWINGS [None]
  - MUSCULOSKELETAL CHEST PAIN [None]
  - NAUSEA [None]
  - NEGATIVE THOUGHTS [None]
  - PANIC DISORDER [None]
  - RASH [None]
  - SUICIDAL IDEATION [None]
  - TACHYCARDIA [None]
  - TEARFULNESS [None]
